FAERS Safety Report 16466894 (Version 3)
Quarter: 2019Q4

REPORT INFORMATION
  Report Type: Report from Study
  Country: JP (occurrence: JP)
  Receive Date: 20190624
  Receipt Date: 20191001
  Transmission Date: 20200122
  Serious: No
  Sender: FDA-Public Use
  Company Number: JP-BEH-2019103260

PATIENT
  Age: 89 Year
  Sex: Female
  Weight: 48 kg

DRUGS (35)
  1. BERIPLEX P/N [Suspect]
     Active Substance: COAGULATION FACTOR IX HUMAN\COAGULATION FACTOR VII HUMAN\COAGULATION FACTOR X HUMAN\PROTEIN C\PROTEIN S HUMAN\PROTHROMBIN
     Dosage: UNK
     Route: 042
  2. WARFARIN POTASSIUM [Concomitant]
     Active Substance: WARFARIN POTASSIUM
     Indication: PROPHYLAXIS
  3. ARICEPT [Concomitant]
     Active Substance: DONEPEZIL HYDROCHLORIDE
     Route: 048
  4. VOLTAREN [Concomitant]
     Active Substance: DICLOFENAC SODIUM
     Indication: PAIN
     Dosage: UNK
     Route: 065
     Dates: start: 20180210, end: 20180210
  5. BERIPLEX P/N [Suspect]
     Active Substance: COAGULATION FACTOR IX HUMAN\COAGULATION FACTOR VII HUMAN\COAGULATION FACTOR X HUMAN\PROTEIN C\PROTEIN S HUMAN\PROTHROMBIN
     Indication: HAEMORRHAGE
     Dosage: 1200 INTERNATIONAL UNIT, TOT
     Route: 042
     Dates: start: 20180129
  6. BERIPLEX P/N [Suspect]
     Active Substance: COAGULATION FACTOR IX HUMAN\COAGULATION FACTOR VII HUMAN\COAGULATION FACTOR X HUMAN\PROTEIN C\PROTEIN S HUMAN\PROTHROMBIN
     Dosage: UNK
     Route: 042
  7. KAYTWO [Concomitant]
     Active Substance: MENATETRENONE
     Indication: VITAMIN K
  8. BONOTEO [Concomitant]
     Active Substance: MINODRONIC ACID
     Route: 048
  9. LAC-B [Concomitant]
     Active Substance: BIFIDOBACTERIUM SPP.
     Dosage: UNK
     Route: 048
     Dates: start: 20180207, end: 20180211
  10. SODIUM PICOSULFATE [Concomitant]
     Active Substance: SODIUM PICOSULFATE
     Dosage: UNK
     Route: 048
     Dates: start: 20180202, end: 20180202
  11. BELSOMRA [Concomitant]
     Active Substance: SUVOREXANT
     Dosage: UNK
     Route: 048
     Dates: start: 20180220
  12. NICARDIPINE HYDROCHLORIDE. [Concomitant]
     Active Substance: NICARDIPINE HYDROCHLORIDE
     Dosage: UNK
     Route: 065
     Dates: start: 20180129, end: 20180129
  13. FAMOTIDINE. [Concomitant]
     Active Substance: FAMOTIDINE
     Indication: CEREBRAL HAEMATOMA
     Dosage: UNK
     Route: 065
     Dates: start: 20180129, end: 20180130
  14. YUNASUPIN [Concomitant]
     Active Substance: AMPICILLIN SODIUM\SULBACTAM SODIUM
     Dosage: UNK
     Route: 065
     Dates: start: 20180203, end: 20180206
  15. BERIPLEX P/N [Suspect]
     Active Substance: COAGULATION FACTOR IX HUMAN\COAGULATION FACTOR VII HUMAN\COAGULATION FACTOR X HUMAN\PROTEIN C\PROTEIN S HUMAN\PROTHROMBIN
     Dosage: UNK
     Route: 042
  16. WARFARIN POTASSIUM [Concomitant]
     Active Substance: WARFARIN POTASSIUM
     Indication: DEEP VEIN THROMBOSIS
     Dosage: 3.5 MILLIGRAM
     Route: 048
     Dates: start: 20111020
  17. CARBAZOCHROME SODIUM SULFONATE TRIHYDRATE [Concomitant]
     Indication: HAEMORRHAGE
     Dosage: UNK
     Route: 065
     Dates: start: 20180129, end: 20180130
  18. TRANEXAMIC ACID. [Concomitant]
     Active Substance: TRANEXAMIC ACID
     Indication: HAEMORRHAGE
     Dosage: UNK
     Route: 065
     Dates: start: 20180129, end: 20180130
  19. HUMULIN R [Concomitant]
     Active Substance: INSULIN HUMAN
     Dosage: UNK
     Route: 065
     Dates: start: 20180129, end: 20180205
  20. MICARDIS [Concomitant]
     Active Substance: TELMISARTAN
     Route: 048
  21. GLYCEOL [FRUCTOSE;GLYCEROL] [Concomitant]
     Dosage: UNK
     Route: 065
     Dates: start: 20180201, end: 20180204
  22. LEVOFLOXACIN HEMIHYDRATE [Concomitant]
     Active Substance: LEVOFLOXACIN
     Dosage: UNK
     Route: 048
     Dates: start: 20180212, end: 20180221
  23. DAIKENCHUTO [Concomitant]
     Active Substance: HERBALS
     Indication: ABDOMINAL DISTENSION
     Dosage: 1 GRAM
     Route: 048
     Dates: start: 20180214, end: 20180218
  24. LECICARBON [SODIUM BICARBONATE;SODIUM PHOSPHATE MONOBASIC (ANHYDROUS)] [Concomitant]
     Dosage: UNK
     Route: 065
     Dates: start: 20180220, end: 20180220
  25. REBAMIPIDE [Concomitant]
     Active Substance: REBAMIPIDE
     Route: 048
  26. KAYTWO [Concomitant]
     Active Substance: MENATETRENONE
     Indication: PROCOAGULANT THERAPY
     Dosage: 10 MILLIGRAM, SINGLE
     Route: 065
     Dates: start: 20180129, end: 20180129
  27. TRAVELMIN [DIPHENHYDRAMINE SALICYLATE;DIPROPHYLLINE] [Concomitant]
     Indication: DIZZINESS
     Dosage: UNK
     Route: 048
     Dates: start: 20180215
  28. BERIPLEX P/N [Suspect]
     Active Substance: COAGULATION FACTOR IX HUMAN\COAGULATION FACTOR VII HUMAN\COAGULATION FACTOR X HUMAN\PROTEIN C\PROTEIN S HUMAN\PROTHROMBIN
     Indication: HAEMORRHAGE
     Dosage: 1200 INTERNATIONAL UNIT, TOT
     Route: 042
     Dates: start: 20180129
  29. BERIPLEX P/N [Suspect]
     Active Substance: COAGULATION FACTOR IX HUMAN\COAGULATION FACTOR VII HUMAN\COAGULATION FACTOR X HUMAN\PROTEIN C\PROTEIN S HUMAN\PROTHROMBIN
     Dosage: UNK
     Route: 042
  30. WARFARIN POTASSIUM [Concomitant]
     Active Substance: WARFARIN POTASSIUM
     Indication: ANTICOAGULANT THERAPY
     Dosage: 3.5 UNK
     Route: 048
     Dates: start: 20180201
  31. FAMOTIDINE. [Concomitant]
     Active Substance: FAMOTIDINE
     Indication: PROPHYLAXIS AGAINST GASTROINTESTINAL ULCER
  32. NEXIUM [Concomitant]
     Active Substance: ESOMEPRAZOLE MAGNESIUM
     Route: 048
  33. SEPAMIT-R [Concomitant]
     Active Substance: NIFEDIPINE
     Dosage: UNK
     Route: 048
     Dates: start: 20180201, end: 20180201
  34. LOXOPROFEN SODIUM HYDRATE [Concomitant]
     Active Substance: LOXOPROFEN SODIUM DIHYDRATE
     Indication: PAIN
     Dosage: UNK
     Route: 048
     Dates: start: 20180213
  35. ROZEREM [Concomitant]
     Active Substance: RAMELTEON
     Dosage: UNK
     Route: 048
     Dates: start: 20180220

REACTIONS (6)
  - Dizziness [Recovered/Resolved]
  - Vomiting [Recovered/Resolved]
  - Amylase increased [Recovered/Resolved]
  - Blood creatine phosphokinase increased [Recovered/Resolved]
  - Nausea [Recovered/Resolved]
  - Abdominal distension [Recovered/Resolved]

NARRATIVE: CASE EVENT DATE: 20180130
